FAERS Safety Report 5627524-3 (Version None)
Quarter: 2008Q1

REPORT INFORMATION
  Report Type: 
  Country: None (occurrence: None)
  Receive Date: 20080215
  Receipt Date: 20071108
  Transmission Date: 20080703
  Serious: No
  Sender: FDA-Public Use
  Company Number: A0692963A

PATIENT
  Age: 68 Year
  Sex: Male

DRUGS (8)
  1. COREG CR [Suspect]
     Indication: HYPERTENSION
     Dosage: 40MG PER DAY
     Route: 048
  2. LOTREL [Concomitant]
  3. KLOR-CON [Concomitant]
  4. ISOSORBIDE DINITRATE [Concomitant]
  5. AVANDAMET [Concomitant]
  6. PREVACID [Concomitant]
  7. PROVIGIL [Concomitant]
  8. FUROSEMIDE [Concomitant]

REACTIONS (3)
  - DIZZINESS [None]
  - FATIGUE [None]
  - FEELING ABNORMAL [None]
